FAERS Safety Report 8549775-0 (Version None)
Quarter: 2012Q3

REPORT INFORMATION
  Report Type: 
  Country: None (occurrence: None)
  Receive Date: 20120720
  Receipt Date: 20120720
  Transmission Date: 20120928
  Serious: Yes (Hospitalization)
  Sender: FDA-Public Use
  Company Number: None

PATIENT
  Age: 64 Year
  Sex: Male
  Weight: 78.8 kg

DRUGS (1)
  1. CARBOPLATIN [Suspect]
     Indication: NEOPLASM
     Dosage: 500 MG ONCE IV
     Route: 042
     Dates: start: 20120718, end: 20120718

REACTIONS (2)
  - CONVULSION [None]
  - RESPIRATORY ARREST [None]
